FAERS Safety Report 15035889 (Version 8)
Quarter: 2020Q3

REPORT INFORMATION
  Report Type: Report from Study
  Country: DE (occurrence: DE)
  Receive Date: 20180620
  Receipt Date: 20200723
  Transmission Date: 20201102
  Serious: Yes (Hospitalization)
  Sender: FDA-Public Use
  Company Number: PHHO2018DE006468

PATIENT
  Age: 60 Year
  Sex: Male
  Weight: 93 kg

DRUGS (3)
  1. TRAMETINIB [Suspect]
     Active Substance: TRAMETINIB
     Indication: MALIGNANT MELANOMA
     Dosage: 2MG, QD
     Route: 048
     Dates: start: 20200320
  2. SPARTALIZUMAB [Suspect]
     Active Substance: SPARTALIZUMAB
     Indication: MALIGNANT MELANOMA
     Dosage: 400 MG, Q4W
     Route: 042
     Dates: start: 20180320
  3. DABRAFENIB [Suspect]
     Active Substance: DABRAFENIB
     Indication: MALIGNANT MELANOMA
     Dosage: 150 MG, BID
     Route: 048
     Dates: start: 20180320

REACTIONS (6)
  - Pulmonary embolism [Recovered/Resolved]
  - Bacterial sepsis [Recovered/Resolved with Sequelae]
  - Anaemia [Not Recovered/Not Resolved]
  - Pyelonephritis [Recovered/Resolved with Sequelae]
  - Autoimmune hepatitis [Recovered/Resolved]
  - Liver disorder [Recovered/Resolved with Sequelae]

NARRATIVE: CASE EVENT DATE: 20180513
